FAERS Safety Report 23862363 (Version 1)
Quarter: 2024Q2

REPORT INFORMATION
  Report Type: Spontaneous
  Country: US (occurrence: US)
  Receive Date: 20240516
  Receipt Date: 20240516
  Transmission Date: 20240716
  Serious: No
  Sender: FDA-Public Use
  Company Number: US-009507513-2405USA003568

PATIENT
  Age: 57 Year
  Weight: 119.8 kg

DRUGS (2)
  1. NOXAFIL [Interacting]
     Active Substance: POSACONAZOLE
     Dosage: UNK
     Route: 048
  2. APIXABAN [Interacting]
     Active Substance: APIXABAN
     Indication: Deep vein thrombosis
     Dosage: 5 MILLIGRAM, BID

REACTIONS (1)
  - Labelled drug-drug interaction issue [Unknown]
